FAERS Safety Report 9552220 (Version 1)
Quarter: 2013Q3

REPORT INFORMATION
  Report Type: Spontaneous
  Country: GB (occurrence: GB)
  Receive Date: 20130925
  Receipt Date: 20130925
  Transmission Date: 20140515
  Serious: Yes (Life-Threatening, Hospitalization, Other)
  Sender: FDA-Public Use
  Company Number: PHHY2013GB104931

PATIENT
  Age: 76 Year
  Sex: Male

DRUGS (8)
  1. LISINOPRIL [Suspect]
     Indication: HYPERTENSION
     Dosage: 10 MG, QD
     Route: 048
     Dates: start: 20110412, end: 20130809
  2. NICORANDIL [Suspect]
     Indication: ANGINA PECTORIS
     Dosage: 10 MG, BID
     Route: 048
     Dates: start: 20130516, end: 20130809
  3. BISOPROLOL [Concomitant]
  4. CLOPIDOGREL [Concomitant]
  5. ASPIRIN [Concomitant]
  6. ATORVASTATIN [Concomitant]
  7. FUROSEMIDE [Concomitant]
  8. LANSOPRAZOLE [Concomitant]

REACTIONS (5)
  - Cardiac arrest [Unknown]
  - Hypoxia [Unknown]
  - Obstructive airways disorder [Unknown]
  - Angioedema [Recovering/Resolving]
  - Swollen tongue [Unknown]
